FAERS Safety Report 7698918 (Version 2)
Quarter: 2014Q1

REPORT INFORMATION
  Report Type: Spontaneous
  Country: US (occurrence: US)
  Receive Date: 20101208
  Receipt Date: 20140124
  Transmission Date: 20141002
  Serious: Yes (Life-Threatening, Other)
  Sender: FDA-Public Use
  Company Number: US-ROXANE LABORATORIES, INC.-2010-RO-01563RO

PATIENT
  Age: 50 Year
  Sex: Male

DRUGS (3)
  1. AMLODIPINE [Suspect]
     Dosage: 500 MG
  2. HCTZ [Suspect]
     Dosage: 625 MG
  3. LISINOPRIL [Suspect]
     Dosage: 1 G

REACTIONS (8)
  - Intentional overdose [Unknown]
  - Shock [Recovered/Resolved]
  - Respiratory failure [Recovered/Resolved]
  - Drug ineffective [Unknown]
  - Renal failure acute [Unknown]
  - Cardiac output decreased [Recovered/Resolved]
  - Staphylococcal sepsis [Unknown]
  - Pericardial effusion [Unknown]
